FAERS Safety Report 9999304 (Version 2)
Quarter: 2014Q1

REPORT INFORMATION
  Report Type: Report from Study
  Country: CZ (occurrence: CZ)
  Receive Date: 20140312
  Receipt Date: 20140318
  Transmission Date: 20141002
  Serious: Yes (Death, Hospitalization)
  Sender: FDA-Public Use
  Company Number: CZ-JNJFOC-20140306183

PATIENT
  Age: 62 Year
  Sex: Male

DRUGS (10)
  1. SIMPONI [Suspect]
     Indication: PSORIATIC ARTHROPATHY
     Route: 058
     Dates: start: 20130410, end: 20140226
  2. MTX [Concomitant]
     Route: 065
  3. MEDROL [Concomitant]
     Route: 065
  4. NORADRENALINE [Concomitant]
     Dosage: 5 AMP/50 ML KIN 3..5 ML/H,
     Route: 065
  5. TAZOCIN [Concomitant]
     Dosage: 4,5 G
     Route: 042
  6. MYCOMAX [Concomitant]
     Route: 042
  7. HELICID [Concomitant]
     Route: 042
  8. DEXAMED N [Concomitant]
     Route: 042
  9. TRAMAL [Concomitant]
     Route: 065
  10. PLASMA LYTE [Concomitant]
     Dosage: 2XERY, 2XSEP
     Route: 065

REACTIONS (4)
  - Renal failure [Fatal]
  - Sepsis [Fatal]
  - Febrile neutropenia [Fatal]
  - Pancytopenia [Fatal]
